FAERS Safety Report 16086419 (Version 2)
Quarter: 2019Q2

REPORT INFORMATION
  Report Type: Spontaneous
  Country: CN (occurrence: CN)
  Receive Date: 20190318
  Receipt Date: 20190412
  Transmission Date: 20190711
  Serious: Yes (Hospitalization)
  Sender: FDA-Public Use
  Company Number: CN-CELGENEUS-CHN-20190303324

PATIENT
  Age: 72 Year
  Sex: Female
  Weight: 62 kg

DRUGS (12)
  1. AZACITIDINE. [Suspect]
     Active Substance: AZACITIDINE
     Indication: ACUTE MYELOID LEUKAEMIA
     Dosage: 18.75 MILLIGRAM/SQ. METER
     Route: 058
     Dates: start: 20180917, end: 20190201
  2. MUPIROCIN. [Concomitant]
     Active Substance: MUPIROCIN
     Indication: INJECTION SITE PAIN
  3. COMPOUND SODIUM BICARBONATE [Concomitant]
     Indication: INFECTION PROPHYLAXIS
     Route: 065
     Dates: start: 20180917
  4. BUTENAFINE [Concomitant]
     Active Substance: BUTENAFINE HYDROCHLORIDE
     Indication: TINEA INFECTION
     Route: 062
     Dates: start: 20181113
  5. IODINE GLYCEROL [Concomitant]
     Indication: INFECTION PROPHYLAXIS
     Route: 002
     Dates: start: 20180917
  6. MUPIROCIN. [Concomitant]
     Active Substance: MUPIROCIN
     Indication: PROPHYLAXIS
  7. HIRUDOID [Concomitant]
     Active Substance: GLYCOSAMINOGLYCANS
     Indication: INJECTION SITE PAIN
  8. HIRUDOID [Concomitant]
     Active Substance: GLYCOSAMINOGLYCANS
     Indication: PROPHYLAXIS
  9. MUPIROCIN. [Concomitant]
     Active Substance: MUPIROCIN
     Indication: INJECTION SITE SWELLING
     Route: 003
     Dates: start: 20180910
  10. SCUTELLARIA BAICALENSIS [Concomitant]
     Indication: INFECTION PROPHYLAXIS
     Route: 054
     Dates: start: 20180917
  11. HIRUDOID [Concomitant]
     Active Substance: GLYCOSAMINOGLYCANS
     Indication: INJECTION SITE SWELLING
     Route: 003
     Dates: start: 20180917
  12. POVIDONE-IODINE. [Concomitant]
     Active Substance: POVIDONE-IODINE
     Indication: INFECTION PROPHYLAXIS
     Route: 061
     Dates: start: 20180917

REACTIONS (1)
  - Vertigo [Recovered/Resolved]

NARRATIVE: CASE EVENT DATE: 20190224
